FAERS Safety Report 9012266 (Version 3)
Quarter: 2013Q2

REPORT INFORMATION
  Report Type: Report from Study
  Country: CA (occurrence: CA)
  Receive Date: 20130114
  Receipt Date: 20130508
  Transmission Date: 20140414
  Serious: Yes (Other)
  Sender: FDA-Public Use
  Company Number: PHHY2013CA002526

PATIENT
  Age: 64 Year
  Sex: Male

DRUGS (1)
  1. SANDOSTATIN LAR [Suspect]
     Indication: ACROMEGALY
     Dosage: 20 MG, ONCE MONTHLY
     Route: 030
     Dates: start: 20050808

REACTIONS (4)
  - Nephrolithiasis [Unknown]
  - Pain [Unknown]
  - Groin pain [Unknown]
  - Polyp [Unknown]
